FAERS Safety Report 23040434 (Version 2)
Quarter: 2023Q4

REPORT INFORMATION
  Report Type: Other
  Country: US (occurrence: US)
  Receive Date: 20231006
  Receipt Date: 20231006
  Transmission Date: 20240110
  Serious: No
  Sender: FDA-Public Use
  Company Number: US-TRAVERE-2023TVT00173

PATIENT
  Age: 9 Month
  Sex: Male

DRUGS (2)
  1. CHOLBAM [Suspect]
     Active Substance: CHOLIC ACID
     Indication: Bile acid synthesis disorder
     Route: 048
     Dates: start: 20230427
  2. CHOLBAM [Suspect]
     Active Substance: CHOLIC ACID
     Indication: Lipid metabolism disorder
     Route: 048
     Dates: start: 20230524

REACTIONS (2)
  - Vitamin D increased [Unknown]
  - Dermatitis diaper [Unknown]
